FAERS Safety Report 8350433-6 (Version None)
Quarter: 2012Q2

REPORT INFORMATION
  Report Type: 
  Country: None (occurrence: None)
  Receive Date: 20120510
  Receipt Date: 20100707
  Transmission Date: 20120825
  Serious: No
  Sender: FDA-Public Use
  Company Number: US-TEVA-2010003681

PATIENT
  Sex: Male
  Weight: 94.432 kg

DRUGS (7)
  1. INTERFERON [Concomitant]
     Indication: HEPATITIS C
     Dates: start: 20100501
  2. PEPCID COMPLETE [Concomitant]
  3. ATACAND [Concomitant]
     Indication: HYPERTENSION
  4. NORVASC [Concomitant]
     Indication: HYPERTENSION
     Dates: start: 19980101
  5. NUVIGIL [Suspect]
     Indication: FATIGUE
     Dosage: 250 MILLIGRAM;
     Route: 048
     Dates: start: 20100707, end: 20100707
  6. ZEGERID [Concomitant]
  7. RIBAVIRIN [Concomitant]
     Indication: HEPATITIS C

REACTIONS (7)
  - FEELING ABNORMAL [None]
  - CHEST PAIN [None]
  - PSYCHOMOTOR HYPERACTIVITY [None]
  - FLATULENCE [None]
  - FEELING JITTERY [None]
  - DIZZINESS [None]
  - DRUG EFFECT INCREASED [None]
